FAERS Safety Report 10073998 (Version 1)
Quarter: 2014Q2

REPORT INFORMATION
  Report Type: Spontaneous
  Country: US (occurrence: US)
  Receive Date: 20140411
  Receipt Date: 20140411
  Transmission Date: 20141212
  Serious: No
  Sender: FDA-Public Use
  Company Number: US-SA-2013SA123395

PATIENT
  Age: 64 Year
  Sex: Male

DRUGS (2)
  1. ALLEGRA D [Suspect]
     Indication: HYPERSENSITIVITY
     Route: 048
     Dates: end: 20131125
  2. ALLEGRA D [Suspect]
     Indication: SINUSITIS
     Route: 048
     Dates: end: 20131125

REACTIONS (4)
  - Dizziness [Unknown]
  - Feeling jittery [Unknown]
  - Extra dose administered [Unknown]
  - Wrong technique in drug usage process [Unknown]
